FAERS Safety Report 7044576-7 (Version None)
Quarter: 2010Q4

REPORT INFORMATION
  Report Type: 
  Country: None (occurrence: None)
  Receive Date: 20101014
  Receipt Date: 20101001
  Transmission Date: 20110411
  Serious: Yes (Hospitalization)
  Sender: FDA-Public Use
  Company Number: JP-NOVOPROD-304513

PATIENT
  Age: 72 Year
  Sex: Male
  Weight: 53 kg

DRUGS (7)
  1. NOVORAPID CHU FLEXPEN [Suspect]
     Indication: TYPE 2 DIABETES MELLITUS
     Dosage: 6 U, TID
     Dates: start: 20060101, end: 20080701
  2. LEVEMIR [Suspect]
     Indication: TYPE 2 DIABETES MELLITUS
     Dosage: UNK
     Dates: start: 20080701
  3. MIGLITOL [Concomitant]
     Dosage: 150 MG, QD
     Route: 048
  4. HUMALOG [Concomitant]
     Dosage: 40 U, QD
     Route: 058
  5. PIOGLITAZONE                       /01460202/ [Concomitant]
     Dosage: 15 MG, QD
  6. INSULIN LISPRO [Concomitant]
  7. ISOPHANE INSULIN [Suspect]

REACTIONS (6)
  - ANTI-INSULIN ANTIBODY INCREASED [None]
  - DIABETES MELLITUS INADEQUATE CONTROL [None]
  - HYPERGLYCAEMIA [None]
  - HYPOGLYCAEMIA [None]
  - INJECTION SITE ERYTHEMA [None]
  - INJECTION SITE PRURITUS [None]
